FAERS Safety Report 6096334-8 (Version None)
Quarter: 2009Q1

REPORT INFORMATION
  Report Type: 
  Country: None (occurrence: None)
  Receive Date: 20090227
  Receipt Date: 20081114
  Transmission Date: 20090719
  Serious: No
  Sender: FDA-Public Use
  Company Number: A0756473A

PATIENT
  Sex: Female

DRUGS (1)
  1. LAMICTAL [Suspect]
     Indication: EPILEPSY
     Dosage: 550MG TWICE PER DAY
     Route: 048
     Dates: end: 20081112

REACTIONS (2)
  - CONFUSIONAL STATE [None]
  - MALAISE [None]
